FAERS Safety Report 25616850 (Version 2)
Quarter: 2025Q3

REPORT INFORMATION
  Report Type: Report from Study
  Country: EU (occurrence: EU)
  Receive Date: 20250729
  Receipt Date: 20250729
  Transmission Date: 20251020
  Serious: Yes (Other)
  Sender: ALEXION PHARMACEUTICALS
  Company Number: EU-AstraZeneca-2020SF06238

PATIENT
  Age: 14 Year
  Sex: Female
  Weight: 40 kg

DRUGS (3)
  1. SELUMETINIB [Suspect]
     Active Substance: SELUMETINIB
     Indication: Neurofibromatosis
     Dosage: 20 MILLIGRAM, BID
     Dates: start: 20200617, end: 20211031
  2. AMOXICILLIN TRIHYDRATE [Concomitant]
     Active Substance: AMOXICILLIN
     Dosage: 200 MILLIGRAM, BID
     Route: 065
     Dates: start: 20200816
  3. CLAVULANATE POTASSIUM [Concomitant]
     Active Substance: CLAVULANATE POTASSIUM
     Route: 065

REACTIONS (9)
  - Acne [Unknown]
  - Paronychia [Unknown]
  - Folliculitis [Unknown]
  - Dry skin [Unknown]
  - Skin infection [Unknown]
  - Treatment noncompliance [Unknown]
  - Rash [Unknown]
  - Dermatitis acneiform [Unknown]
  - Diffuse alopecia [Unknown]

NARRATIVE: CASE EVENT DATE: 20200701
